FAERS Safety Report 19805546 (Version 2)
Quarter: 2022Q3

REPORT INFORMATION
  Report Type: Report from Study
  Country: US (occurrence: US)
  Receive Date: 20210908
  Receipt Date: 20220708
  Transmission Date: 20221027
  Serious: Yes (Hospitalization, Other)
  Sender: FDA-Public Use
  Company Number: US-SHIRE-US202033208

PATIENT
  Age: 13 Year
  Sex: Male

DRUGS (3)
  1. HUMAN IMMUNOGLOBULIN G [Suspect]
     Active Substance: HUMAN IMMUNOGLOBULIN G
     Indication: Primary immunodeficiency syndrome
     Dosage: 15 GRAM, Q2WEEKS
     Route: 065
  2. HUMAN IMMUNOGLOBULIN G [Suspect]
     Active Substance: HUMAN IMMUNOGLOBULIN G
     Dosage: UNK, Q3WEEKS
     Route: 065
  3. METHOTREXATE [Suspect]
     Active Substance: METHOTREXATE
     Indication: Product used for unknown indication
     Dosage: UNK
     Route: 065

REACTIONS (11)
  - Illness [Unknown]
  - Infection [Unknown]
  - Gastrointestinal obstruction [Unknown]
  - Rheumatoid arthritis [Unknown]
  - COVID-19 [Recovered/Resolved]
  - Anger [Unknown]
  - Depression [Unknown]
  - Therapy interrupted [Unknown]
  - Inappropriate schedule of product administration [Unknown]
  - Inability to afford medication [Unknown]
  - Insurance issue [Unknown]

NARRATIVE: CASE EVENT DATE: 20201008
